FAERS Safety Report 5506191-3 (Version None)
Quarter: 2007Q4

REPORT INFORMATION
  Report Type: 
  Country: None (occurrence: None)
  Receive Date: 20071101
  Receipt Date: 20071016
  Transmission Date: 20080405
  Serious: Yes (Life-Threatening, Other)
  Sender: FDA-Public Use
  Company Number: 2007S1010015

PATIENT
  Age: 71 Year

DRUGS (6)
  1. LASTET (ETOPOSIDE) [Suspect]
     Indication: SMALL CELL LUNG CANCER STAGE UNSPECIFIED
     Dosage: 103 MG; INTRAVENOUS; DAILY
     Route: 042
     Dates: start: 20070718
  2. LASTET (ETOPOSIDE) [Suspect]
     Indication: SMALL CELL LUNG CANCER STAGE UNSPECIFIED
     Dosage: 103 MG; INTRAVENOUS; DAILY
     Route: 042
     Dates: start: 20070815
  3. LASTET (ETOPOSIDE) [Suspect]
     Indication: SMALL CELL LUNG CANCER STAGE UNSPECIFIED
     Dosage: 103 MG; INTRAVENOUS; DAILY
     Route: 042
     Dates: start: 20070905
  4. CARBOPLATIN [Suspect]
     Indication: SMALL CELL LUNG CANCER STAGE UNSPECIFIED
     Dosage: 452 MG; DAILY, INTRAVENOUS
     Route: 042
     Dates: start: 20070718
  5. CARBOPLATIN [Suspect]
     Indication: SMALL CELL LUNG CANCER STAGE UNSPECIFIED
     Dosage: 452 MG; DAILY, INTRAVENOUS
     Route: 042
     Dates: start: 20070815
  6. CARBOPLATIN [Suspect]
     Indication: SMALL CELL LUNG CANCER STAGE UNSPECIFIED
     Dosage: 452 MG; DAILY, INTRAVENOUS
     Route: 042
     Dates: start: 20070905

REACTIONS (7)
  - BLOOD DISORDER [None]
  - HAEMOGLOBIN DECREASED [None]
  - LEUKOPENIA [None]
  - LYMPHOPENIA [None]
  - NEUTROPENIA [None]
  - THROMBOCYTOPENIA [None]
  - VASCULITIS [None]
